FAERS Safety Report 9494876 (Version 1)
Quarter: 2013Q3

REPORT INFORMATION
  Report Type: Report from Study
  Country: MX (occurrence: MX)
  Receive Date: 20130903
  Receipt Date: 20130903
  Transmission Date: 20140515
  Serious: Yes (Death)
  Sender: FDA-Public Use
  Company Number: MX-ROCHE-1269605

PATIENT
  Age: 78 Year
  Sex: Female
  Weight: 74 kg

DRUGS (6)
  1. XELODA [Suspect]
     Indication: BREAST CANCER METASTATIC
     Route: 048
     Dates: start: 201205, end: 201207
  2. XELODA [Suspect]
     Indication: METASTASES TO LUNG
     Route: 048
     Dates: start: 201207, end: 201212
  3. XELODA [Suspect]
     Route: 048
     Dates: start: 201301, end: 201301
  4. XELODA [Suspect]
     Route: 048
     Dates: start: 201303, end: 201306
  5. ROSIGLITAZONE [Concomitant]
     Indication: DIABETES MELLITUS
     Route: 048
     Dates: start: 2003
  6. PROPANOLOL [Concomitant]
     Indication: HYPERTENSION
     Route: 048
     Dates: start: 2012

REACTIONS (7)
  - Cardio-respiratory arrest [Fatal]
  - Disease progression [Fatal]
  - Pneumothorax [Fatal]
  - Nausea [Not Recovered/Not Resolved]
  - Vomiting [Not Recovered/Not Resolved]
  - Diarrhoea [Unknown]
  - Palmar-plantar erythrodysaesthesia syndrome [Not Recovered/Not Resolved]
